FAERS Safety Report 14494623 (Version 1)
Quarter: 2018Q1

REPORT INFORMATION
  Report Type: Spontaneous
  Country: US (occurrence: US)
  Receive Date: 20180205
  Receipt Date: 20180205
  Transmission Date: 20180509
  Serious: Yes (Other)
  Sender: FDA-Public Use
  Company Number: None

PATIENT
  Age: 68 Year
  Sex: Female

DRUGS (1)
  1. WARFARIN [Suspect]
     Active Substance: WARFARIN

REACTIONS (10)
  - Faeces discoloured [None]
  - Head injury [None]
  - Haemoglobin decreased [None]
  - Syncope [None]
  - Loss of consciousness [None]
  - Subdural haematoma [None]
  - International normalised ratio increased [None]
  - Fall [None]
  - Therapy cessation [None]
  - Back pain [None]
